FAERS Safety Report 14412136 (Version 2)
Quarter: 2018Q2

REPORT INFORMATION
  Report Type: Spontaneous
  Country: FR (occurrence: FR)
  Receive Date: 20180119
  Receipt Date: 20180410
  Transmission Date: 20180711
  Serious: Yes (Hospitalization, Other)
  Sender: FDA-Public Use
  Company Number: PHHY2017FR199128

PATIENT
  Sex: Female

DRUGS (17)
  1. DEXAMETHASONE. [Suspect]
     Active Substance: DEXAMETHASONE
     Indication: ACUTE LYMPHOCYTIC LEUKAEMIA
     Dosage: 22.5 MG, UNK
     Route: 065
     Dates: start: 20170727
  2. DEXAMETHASONE. [Suspect]
     Active Substance: DEXAMETHASONE
     Dosage: 20 MG, UNK
     Route: 065
     Dates: start: 20170824, end: 20170831
  3. DOLIPRANE [Concomitant]
     Active Substance: ACETAMINOPHEN
     Indication: HYPERBILIRUBINAEMIA
     Route: 065
  4. METHOTREXATE. [Suspect]
     Active Substance: METHOTREXATE
     Indication: ACUTE LYMPHOCYTIC LEUKAEMIA
     Dosage: 12 MG (D2, D30, D58)
     Route: 037
     Dates: start: 20170728
  5. VINCRISTINE [Suspect]
     Active Substance: VINCRISTINE
     Dosage: 1.1 MG, QD (D8, D29,D64)
     Route: 065
     Dates: start: 20170803, end: 20170928
  6. VANCOMYCIN [Concomitant]
     Active Substance: VANCOMYCIN
     Indication: HYPERBILIRUBINAEMIA
     Route: 065
  7. DECTANCYL [Concomitant]
     Active Substance: DEXAMETHASONE
     Indication: HYPERBILIRUBINAEMIA
     Route: 065
  8. BACTRIM [Concomitant]
     Active Substance: SULFAMETHOXAZOLE\TRIMETHOPRIM
     Indication: HYPERBILIRUBINAEMIA
     Route: 065
  9. INEXIUM [Concomitant]
     Active Substance: ESOMEPRAZOLE
     Indication: HYPERBILIRUBINAEMIA
     Route: 065
  10. CEFTAZIDIME. [Concomitant]
     Active Substance: CEFTAZIDIME
     Indication: HYPERBILIRUBINAEMIA
     Route: 065
  11. 6-MERCAPTOPURINE MONOHYDRATE [Suspect]
     Active Substance: MERCAPTOPURINE
     Dosage: 735 MG, QD
     Route: 048
     Dates: end: 20170913
  12. VINCRISTINE [Suspect]
     Active Substance: VINCRISTINE
     Indication: ACUTE LYMPHOCYTIC LEUKAEMIA
     Dosage: 1 MG, QD (D1, D36,D57)
     Route: 065
     Dates: start: 20170727
  13. METHOTREXATE. [Suspect]
     Active Substance: METHOTREXATE
     Dosage: 17.5 MG, QD
     Route: 037
     Dates: start: 20170803, end: 20170922
  14. ADRIGYL [Concomitant]
     Indication: HYPERBILIRUBINAEMIA
     Route: 065
  15. FUNGIZONE [Concomitant]
     Active Substance: AMPHOTERICIN B
     Indication: HYPERBILIRUBINAEMIA
     Route: 065
  16. PEGASPARGASE [Suspect]
     Active Substance: PEGASPARGASE
     Indication: ACUTE LYMPHOCYTIC LEUKAEMIA
     Dosage: 900 IU, (D8,D36, D64)
     Route: 042
     Dates: start: 20170803, end: 20170928
  17. 6-MERCAPTOPURINE MONOHYDRATE [Suspect]
     Active Substance: MERCAPTOPURINE
     Indication: ACUTE LYMPHOCYTIC LEUKAEMIA
     Dosage: 714 MG, QD
     Route: 048
     Dates: start: 20170824

REACTIONS (2)
  - Hyperbilirubinaemia [Recovered/Resolved]
  - Febrile bone marrow aplasia [Recovered/Resolved]

NARRATIVE: CASE EVENT DATE: 20170921
